FAERS Safety Report 8621803-3 (Version None)
Quarter: 2012Q3

REPORT INFORMATION
  Report Type: 
  Country: None (occurrence: None)
  Receive Date: 20120821
  Receipt Date: 20120821
  Transmission Date: 20120928
  Serious: Yes (Hospitalization)
  Sender: FDA-Public Use
  Company Number: None

PATIENT
  Age: 79 Year
  Sex: Male
  Weight: 61.2356 kg

DRUGS (1)
  1. MULTAQ [Suspect]
     Indication: ATRIAL FIBRILLATION
     Dosage: 400MG BID PO ONE DOSE
     Route: 048
     Dates: start: 20120807, end: 20120807

REACTIONS (3)
  - ANAPHYLACTIC REACTION [None]
  - URTICARIA [None]
  - PRODUCT LABEL ISSUE [None]
